FAERS Safety Report 4495344-1 (Version None)
Quarter: 2004Q4

REPORT INFORMATION
  Report Type: 
  Country: None (occurrence: None)
  Receive Date: 20041108
  Receipt Date: 20031112
  Transmission Date: 20050328
  Serious: Yes (Disabling)
  Sender: FDA-Public Use
  Company Number: FR-NOVOPROD-233918

PATIENT
  Age: 76 Year
  Sex: Male
  Weight: 67 kg

DRUGS (8)
  1. NOVONORM [Suspect]
     Indication: HYPERGLYCAEMIA
     Dosage: 4 MG, QID
     Route: 048
     Dates: start: 20030615
  2. AVLOCARDYL [Concomitant]
     Dosage: 200 MG, QD
     Dates: start: 20030815
  3. CORTANCYL [Concomitant]
     Dosage: 40 MG, QD
     Route: 048
     Dates: start: 20030101
  4. AZATHIOPRINE [Concomitant]
     Dosage: 200 MG, QD
     Route: 048
     Dates: start: 20030615
  5. ALDACTAZINE [Concomitant]
  6. PREDNISONE [Concomitant]
     Dosage: 40 MG, UNK
  7. PREDNISONE [Concomitant]
     Dosage: 20 MG, UNK
  8. IMUREL [Concomitant]
     Dates: start: 20030101

REACTIONS (20)
  - ARTHRALGIA [None]
  - ATAXIA [None]
  - BACK PAIN [None]
  - DIABETIC NEUROPATHY [None]
  - DYSSTASIA [None]
  - EXTENSOR PLANTAR RESPONSE [None]
  - GAIT DISTURBANCE [None]
  - HYPOAESTHESIA [None]
  - HYPOREFLEXIA [None]
  - IMMUNE SYSTEM DISORDER [None]
  - LUNG DISORDER [None]
  - MUSCLE CRAMP [None]
  - MYOPATHY [None]
  - NERVE COMPRESSION [None]
  - NERVE ROOT COMPRESSION [None]
  - NEUROPATHY PERIPHERAL [None]
  - PAIN IN EXTREMITY [None]
  - PALLANAESTHESIA [None]
  - POLYNEUROPATHY [None]
  - TREMOR [None]
